FAERS Safety Report 24850902 (Version 1)
Quarter: 2025Q1

REPORT INFORMATION
  Report Type: Spontaneous
  Country: BE (occurrence: BE)
  Receive Date: 20250116
  Receipt Date: 20250116
  Transmission Date: 20250409
  Serious: Yes (Hospitalization, Other)
  Sender: MYLAN
  Company Number: None

PATIENT
  Age: 53 Year
  Sex: Female

DRUGS (2)
  1. XANAX [Suspect]
     Active Substance: ALPRAZOLAM
     Indication: Product used for unknown indication
     Route: 065
  2. ZOLPIDEM TARTRATE [Suspect]
     Active Substance: ZOLPIDEM TARTRATE
     Indication: Product used for unknown indication
     Route: 065

REACTIONS (3)
  - Pharmaceutical nomadism [Unknown]
  - Intentional product misuse [Unknown]
  - Drug abuse [Unknown]
